FAERS Safety Report 14283345 (Version 3)
Quarter: 2018Q1

REPORT INFORMATION
  Report Type: Report from Study
  Country: US (occurrence: US)
  Receive Date: 20171213
  Receipt Date: 20180213
  Transmission Date: 20180508
  Serious: Yes (Hospitalization, Other)
  Sender: FDA-Public Use
  Company Number: US-BAUSCH-BL-2017-034238

PATIENT
  Sex: Female
  Weight: 58.11 kg

DRUGS (5)
  1. ZANAFLEX [Concomitant]
     Active Substance: TIZANIDINE HYDROCHLORIDE
     Indication: PRODUCT USED FOR UNKNOWN INDICATION
     Route: 065
  2. XENAZINE [Suspect]
     Active Substance: TETRABENAZINE
     Indication: HUNTINGTON^S DISEASE
     Route: 048
     Dates: start: 201207
  3. SYNTHROID [Concomitant]
     Active Substance: LEVOTHYROXINE SODIUM
     Indication: PRODUCT USED FOR UNKNOWN INDICATION
     Dosage: DAILY
     Route: 048
  4. FOSAMAX [Concomitant]
     Active Substance: ALENDRONATE SODIUM
     Indication: PRODUCT USED FOR UNKNOWN INDICATION
     Dosage: WEEKLY
     Route: 048
  5. XENAZINE [Suspect]
     Active Substance: TETRABENAZINE
     Route: 048

REACTIONS (12)
  - Thrombocytopenia [Unknown]
  - Pneumonia [Unknown]
  - Nausea [Unknown]
  - Hypothyroidism [Unknown]
  - Huntington^s disease [Unknown]
  - Hypomagnesaemia [Unknown]
  - Vomiting [Unknown]
  - Sepsis [Unknown]
  - Urinary tract infection [Unknown]
  - Eating disorder [Unknown]
  - Pneumonia aspiration [Unknown]
  - Dysphagia [Unknown]
